FAERS Safety Report 7359637-2 (Version None)
Quarter: 2011Q1

REPORT INFORMATION
  Report Type: 
  Country: None (occurrence: None)
  Receive Date: 20110317
  Receipt Date: 20100514
  Transmission Date: 20110831
  Serious: No
  Sender: FDA-Public Use
  Company Number: US-PFIZER INC-2010060887

PATIENT
  Sex: Female

DRUGS (1)
  1. NORVASC [Suspect]
     Indication: HYPERTENSION
     Dosage: UNK

REACTIONS (5)
  - ASTHENIA [None]
  - MALAISE [None]
  - DYSPHAGIA [None]
  - DRUG INEFFECTIVE [None]
  - DRY MOUTH [None]
